FAERS Safety Report 12406168 (Version 2)
Quarter: 2016Q2

REPORT INFORMATION
  Report Type: Spontaneous
  Country: BE (occurrence: BE)
  Receive Date: 20160526
  Receipt Date: 20160629
  Transmission Date: 20160815
  Serious: Yes (Death, Hospitalization)
  Sender: FDA-Public Use
  Company Number: BE-ABBVIE-14P-013-1260448-00

PATIENT
  Age: 71 Year
  Sex: Male

DRUGS (4)
  1. DUODOPA [Suspect]
     Active Substance: CARBIDOPA\LEVODOPA
     Dosage: AM = 6 ML, CD = 3.3 ML/H DURING 16H, ED = 2 ML
     Route: 050
  2. DUODOPA [Suspect]
     Active Substance: CARBIDOPA\LEVODOPA
     Indication: PARKINSON^S DISEASE
     Dosage: AM = 8 ML, CD= 3.4 ML/H DURING 16H, ED= 1.5 ML
     Route: 050
     Dates: start: 20130614, end: 20130619
  3. DUODOPA [Suspect]
     Active Substance: CARBIDOPA\LEVODOPA
     Dosage: AM 0 ML, CD 3.1 ML/H DURING 16H, ED 2ML, ND 2.8 ML/H DURING 8H
     Route: 050
     Dates: start: 20140310
  4. DUODOPA [Suspect]
     Active Substance: CARBIDOPA\LEVODOPA
     Dosage: DOSE CONTINUOUSLY MONITORED AND ADAPTED
     Route: 050
     Dates: start: 20130619, end: 20140310

REACTIONS (10)
  - Device alarm issue [Unknown]
  - Incorrect dosage administered [Unknown]
  - Dystonia [Unknown]
  - Agitation [Unknown]
  - Hip fracture [Unknown]
  - Fatigue [Unknown]
  - Muscle spasms [Not Recovered/Not Resolved]
  - Fall [Recovered/Resolved]
  - Pain in extremity [Unknown]
  - Myocardial infarction [Fatal]

NARRATIVE: CASE EVENT DATE: 20160519
